FAERS Safety Report 6917136-3 (Version None)
Quarter: 2010Q3

REPORT INFORMATION
  Report Type: 
  Country: None (occurrence: None)
  Receive Date: 20100804
  Receipt Date: 20100719
  Transmission Date: 20110219
  Serious: Yes (Other)
  Sender: FDA-Public Use
  Company Number: 7011516

PATIENT
  Age: 54 Year
  Sex: Female

DRUGS (1)
  1. LEVOTHYROXINE SODIUM [Suspect]
     Indication: POST PROCEDURAL HYPOTHYROIDISM
     Dosage: 225 MCG
     Dates: start: 20091201, end: 20100101

REACTIONS (4)
  - DRUG INEFFECTIVE [None]
  - HORMONE LEVEL ABNORMAL [None]
  - PRODUCT QUALITY ISSUE [None]
  - THYROGLOBULIN PRESENT [None]
